FAERS Safety Report 7907503-3 (Version None)
Quarter: 2011Q4

REPORT INFORMATION
  Report Type: 
  Country: None (occurrence: None)
  Receive Date: 20111110
  Receipt Date: 20111031
  Transmission Date: 20120403
  Serious: Yes (Hospitalization, Other)
  Sender: FDA-Public Use
  Company Number: US-BAYER-2011-041776

PATIENT
  Age: 29 Year
  Sex: Female
  Weight: 63 kg

DRUGS (1)
  1. YASMIN [Suspect]
     Indication: ORAL CONTRACEPTION
     Dosage: UNK
     Route: 048
     Dates: start: 20080101, end: 20080501

REACTIONS (5)
  - CEREBROVASCULAR ACCIDENT [None]
  - INJURY [None]
  - THROMBOSIS [None]
  - PAIN [None]
  - EMOTIONAL DISTRESS [None]
